FAERS Safety Report 4842987-9 (Version None)
Quarter: 2005Q4

REPORT INFORMATION
  Report Type: 
  Country: None (occurrence: None)
  Receive Date: 20051201
  Receipt Date: 20051123
  Transmission Date: 20060501
  Serious: Yes (Death)
  Sender: FDA-Public Use
  Company Number: AU-ROCHE-425787

PATIENT
  Age: 46 Year
  Sex: Female
  Weight: 170 kg

DRUGS (3)
  1. VALIUM [Suspect]
     Dosage: UP TO 300 MG.
     Route: 065
  2. CLOZAPINE [Suspect]
     Route: 048
  3. EPILIM [Suspect]
     Route: 065

REACTIONS (3)
  - ACUTE PULMONARY OEDEMA [None]
  - CARDIOMYOPATHY [None]
  - SUDDEN DEATH [None]
